FAERS Safety Report 13511079 (Version 1)
Quarter: 2017Q2

REPORT INFORMATION
  Report Type: Spontaneous
  Country: US (occurrence: US)
  Receive Date: 20170503
  Receipt Date: 20170503
  Transmission Date: 20170830
  Serious: No
  Sender: FDA-Public Use
  Company Number: US-009507513-1704USA014116

PATIENT
  Age: 38 Year
  Sex: Female

DRUGS (3)
  1. DOCUSATE SODIUM. [Concomitant]
     Active Substance: DOCUSATE SODIUM
  2. IBUPROFEN. [Concomitant]
     Active Substance: IBUPROFEN
  3. NEXPLANON [Suspect]
     Active Substance: ETONOGESTREL
     Indication: CONTRACEPTION
     Dosage: 1 DF, 3 YEAR IMPLANT, INSIDE THE LEFT ARM
     Route: 059
     Dates: start: 201704

REACTIONS (1)
  - Implant site bruising [Unknown]

NARRATIVE: CASE EVENT DATE: 201704
